FAERS Safety Report 9344948 (Version 1)
Quarter: 2013Q2

REPORT INFORMATION
  Report Type: Report from Study
  Country: FR (occurrence: FR)
  Receive Date: 20130612
  Receipt Date: 20130612
  Transmission Date: 20140414
  Serious: Yes (Hospitalization)
  Sender: FDA-Public Use
  Company Number: FR-VERTEX PHARMACEUTICALS INC-AE-2011-000825

PATIENT
  Age: 77 Year
  Sex: Male
  Weight: 55 kg

DRUGS (7)
  1. VX-950 (TELAPREVIR) [Suspect]
     Indication: HEPATITIS C
     Dosage: 750 MG, TID
     Route: 048
     Dates: start: 20110614, end: 20110818
  2. PEGASYS [Suspect]
     Indication: HEPATITIS C
     Dosage: DOSAGE FORM: INJECTION
     Route: 058
     Dates: start: 20110520
  3. COPEGUS [Suspect]
     Indication: HEPATITIS C
     Dosage: DOSAGE FORM: TABLET
     Route: 048
     Dates: start: 20110520, end: 20110913
  4. COPEGUS [Suspect]
     Dosage: DOSAGE FORM: TABLET
     Route: 048
  5. NEORECORMON [Concomitant]
     Indication: ANAEMIA
     Dosage: 30000 IU, UNK
     Route: 058
     Dates: start: 20110701
  6. NEORECORMON [Concomitant]
     Dosage: 3000 IU, QW
     Route: 058
     Dates: start: 20110123
  7. METOPROLOL [Concomitant]
     Indication: HYPERTENSION
     Dosage: UNK, QD
     Route: 048

REACTIONS (4)
  - Pancytopenia [Unknown]
  - Anaemia [Recovered/Resolved]
  - Rash [Unknown]
  - Constipation [Unknown]
